FAERS Safety Report 12402715 (Version 1)
Quarter: 2016Q2

REPORT INFORMATION
  Report Type: Spontaneous
  Country: US (occurrence: US)
  Receive Date: 20160525
  Receipt Date: 20160525
  Transmission Date: 20160815
  Serious: No
  Sender: FDA-Public Use
  Company Number: US-BAYER-2016-099023

PATIENT
  Sex: Female

DRUGS (2)
  1. ALEVE [Suspect]
     Active Substance: NAPROXEN SODIUM
     Indication: DYSMENORRHOEA
     Dosage: UNK
  2. MIDOL [ACETYLSALICYLIC ACID,CAFFEINE,CINNAMEDRINE,PHENACETIN] [Concomitant]
     Dosage: UNK
     Dates: start: 20160519, end: 20160519

REACTIONS (1)
  - Menorrhagia [None]
